FAERS Safety Report 18177903 (Version 1)
Quarter: 2020Q3

REPORT INFORMATION
  Report Type: Report from Study
  Country: US (occurrence: US)
  Receive Date: 20200821
  Receipt Date: 20200821
  Transmission Date: 20201103
  Serious: Yes (Death)
  Sender: FDA-Public Use
  Company Number: US-ACTELION-A-NJ2016-147552

PATIENT
  Age: 95 Year
  Sex: Male
  Weight: 77.1 kg

DRUGS (4)
  1. UPTRAVI [Suspect]
     Active Substance: SELEXIPAG
     Indication: PULMONARY ARTERIAL HYPERTENSION
     Dosage: 1000 MCG, BID
     Route: 048
  2. UPTRAVI [Suspect]
     Active Substance: SELEXIPAG
     Dosage: 800 MCG, BID
     Route: 048
  3. UPTRAVI [Suspect]
     Active Substance: SELEXIPAG
     Indication: IDIOPATHIC PULMONARY FIBROSIS
     Dosage: 600 MCG, BID
     Route: 048
     Dates: start: 20161130
  4. OFEV [Suspect]
     Active Substance: NINTEDANIB
     Indication: PRODUCT USED FOR UNKNOWN INDICATION
     Route: 065

REACTIONS (12)
  - Back pain [Unknown]
  - Pain [Unknown]
  - Sinusitis [Unknown]
  - Arthralgia [Unknown]
  - Feeling abnormal [Unknown]
  - Chills [Recovering/Resolving]
  - Influenza [Unknown]
  - Dyspnoea exertional [Unknown]
  - Death [Fatal]
  - Headache [Unknown]
  - Diarrhoea [Recovering/Resolving]
  - Insomnia [Unknown]

NARRATIVE: CASE EVENT DATE: 20200809
